FAERS Safety Report 9071025 (Version 1)
Quarter: 2013Q1

REPORT INFORMATION
  Report Type: Report from Study
  Country: US (occurrence: US)
  Receive Date: 20130129
  Receipt Date: 20130129
  Transmission Date: 20140127
  Serious: No
  Sender: FDA-Public Use
  Company Number: US-ABBOTT-12P-163-0930179-00

PATIENT
  Age: 60 None
  Sex: Female
  Weight: 71.73 kg

DRUGS (6)
  1. HUMIRA 40 MG/0.8 ML PEN [Suspect]
     Indication: COLITIS ULCERATIVE
     Route: 058
     Dates: start: 201111, end: 201204
  2. HUMIRA 40 MG/0.8 ML PEN [Suspect]
     Route: 058
     Dates: start: 201204
  3. PREDNISONE [Concomitant]
     Indication: COLITIS ULCERATIVE
     Dosage: TAPER DOSE FROM 40MG TO 5MG Q 10 DAYS
     Dates: start: 201201
  4. IMURAN [Concomitant]
     Indication: COLITIS ULCERATIVE
  5. CORTIFOAM ENEMAS [Concomitant]
     Indication: COLITIS ULCERATIVE
  6. SINGULAIR [Concomitant]
     Indication: ASTHMA

REACTIONS (11)
  - Gastrointestinal inflammation [Unknown]
  - Incorrect dose administered [Recovered/Resolved]
  - Off label use [Unknown]
  - Drug ineffective for unapproved indication [Not Recovered/Not Resolved]
  - Injection site pain [Not Recovered/Not Resolved]
  - Gastroenteritis viral [Recovered/Resolved]
  - Device malfunction [Recovered/Resolved]
  - Muscle spasms [Not Recovered/Not Resolved]
  - Injection site bruising [Recovered/Resolved]
  - Injection site urticaria [Recovered/Resolved]
  - Gastrointestinal haemorrhage [Unknown]
